FAERS Safety Report 5538371-5 (Version None)
Quarter: 2007Q4

REPORT INFORMATION
  Report Type: 
  Country: None (occurrence: None)
  Receive Date: 20071205
  Receipt Date: 20071123
  Transmission Date: 20080405
  Serious: Yes (Death, Hospitalization)
  Sender: FDA-Public Use
  Company Number: S07-FRA-06111-01

PATIENT
  Age: 93 Year
  Sex: Female

DRUGS (5)
  1. MEMANTINE HCL [Suspect]
     Indication: DEMENTIA ALZHEIMER'S TYPE
     Dosage: 20 MG QD PO
     Route: 048
     Dates: start: 20070401, end: 20070901
  2. ADANCOR (NICORANDIL) [Suspect]
     Indication: ANGINA PECTORIS
     Dates: end: 20070901
  3. COVARSAL (MOLSIDOMINE) [Suspect]
     Indication: ANGINA PECTORIS
     Dates: end: 20070901
  4. TIAPRIDAL (TIAPRIDE) [Suspect]
     Dates: end: 20070901
  5. RISPERDAL [Suspect]
     Dates: end: 20070901

REACTIONS (1)
  - HEPATIC FAILURE [None]
